FAERS Safety Report 8406828-5 (Version None)
Quarter: 2012Q2

REPORT INFORMATION
  Report Type: 
  Country: None (occurrence: None)
  Receive Date: 20120529
  Receipt Date: 20041229
  Transmission Date: 20120825
  Serious: Yes (Hospitalization)
  Sender: FDA-Public Use
  Company Number: 02100-JPN-05-0016

PATIENT
  Age: 79 Year
  Sex: Female
  Weight: 56 kg

DRUGS (10)
  1. ATP (ADENOSINE TRIPHOSPHATE DISODIUM) [Concomitant]
  2. CEFOTIAM HYDROCHLORIDE [Concomitant]
  3. LORCAM (LORNOXICAM) [Concomitant]
  4. METHYCOBAL (MECOBALAMIN) [Concomitant]
  5. CALSLOT (MANIDIPINE HYDROCHLORIDE) [Concomitant]
  6. GLYCEOL (GLYCEROL, FRUCTOSE) [Concomitant]
  7. RADICUT (EDARAVONE) [Concomitant]
  8. KELNAC (PLAUNOTOL) [Concomitant]
  9. PLETAL [Suspect]
     Indication: LACUNAR INFARCTION
     Dosage: 50 MG, BID, ORAL ; 100 MG, BID, ORAL
     Route: 048
     Dates: start: 20040401, end: 20040519
  10. PLETAL [Suspect]
     Indication: LACUNAR INFARCTION
     Dosage: 50 MG, BID, ORAL ; 100 MG, BID, ORAL
     Route: 048
     Dates: start: 20040228, end: 20040331

REACTIONS (6)
  - PLATELET COUNT DECREASED [None]
  - BLOOD PRESSURE ABNORMAL [None]
  - OSTEOARTHRITIS [None]
  - PROTEINURIA [None]
  - ATRIOVENTRICULAR BLOCK FIRST DEGREE [None]
  - ANAEMIA [None]
